FAERS Safety Report 9206929 (Version 3)
Quarter: 2013Q2

REPORT INFORMATION
  Report Type: Spontaneous
  Country: KR (occurrence: KR)
  Receive Date: 20130403
  Receipt Date: 20130501
  Transmission Date: 20140414
  Serious: Yes (Hospitalization)
  Sender: FDA-Public Use
  Company Number: KR-NAPPMUNDI-GBR-2013-0013444

PATIENT
  Age: 54 Year
  Sex: Female

DRUGS (7)
  1. OXYCODONE HCL/NALOXONE HCL PR 20/10MG [Suspect]
     Indication: CANCER PAIN
     Dosage: 100 MG, SINGLE (5 TABLETS OF 20 /10 MG TARGIN)
     Route: 048
     Dates: start: 20130309
  2. OXYCODONE HCL/NALOXONE HCL PR 20/10MG [Suspect]
     Dosage: 20 MG X 2 TABLETS, BID
     Route: 048
  3. OXYCODONE HCL IR TABLETS 5 MG [Concomitant]
     Indication: CANCER PAIN
     Dosage: 5 MG, 5 TABLETS/DAY
     Route: 048
  4. IRESSA [Concomitant]
     Dosage: UNK
     Dates: start: 20130218
  5. DUROGESIC [Concomitant]
     Indication: PAIN
     Dosage: 75 MG, UNK
     Route: 062
     Dates: start: 20130305
  6. DUROGESIC [Concomitant]
     Dosage: UNK
     Route: 062
     Dates: end: 20130305
  7. ALIMTA [Concomitant]
     Dosage: UNK
     Dates: start: 20130218

REACTIONS (6)
  - Medication error [Recovered/Resolved]
  - Wheezing [Recovered/Resolved]
  - Convulsion [Recovered/Resolved]
  - Dyspnoea [Recovered/Resolved]
  - Wrong drug administered [None]
  - Irritability [None]
